FAERS Safety Report 21386421 (Version 2)
Quarter: 2022Q4

REPORT INFORMATION
  Report Type: Spontaneous
  Country: KR (occurrence: KR)
  Receive Date: 20220928
  Receipt Date: 20221011
  Transmission Date: 20230113
  Serious: Yes (Death, Hospitalization, Other)
  Sender: FDA-Public Use
  Company Number: KR-009507513-2203KOR004685

PATIENT
  Age: 29 Year
  Sex: Male
  Weight: 56.5 kg

DRUGS (7)
  1. PREVYMIS [Suspect]
     Active Substance: LETERMOVIR
     Indication: Antiviral prophylaxis
     Dosage: 240 MILLIGRAM, ONCE DAILY, (QD)
     Route: 048
     Dates: start: 20210304, end: 20210609
  2. SULFAMETHOXAZOLE\TRIMETHOPRIM [Concomitant]
     Active Substance: SULFAMETHOXAZOLE\TRIMETHOPRIM
     Indication: Infection prophylaxis
     Dosage: 1 TAB, QD
     Route: 048
     Dates: start: 20210220
  3. VACRAX [ACICLOVIR] [Concomitant]
     Indication: Prophylaxis
     Dosage: 400 MILLIGRAM, BID
     Route: 048
     Dates: start: 20210220
  4. CYCLOSPORINE [Concomitant]
     Active Substance: CYCLOSPORINE
     Indication: Prophylaxis against graft versus host disease
     Dosage: 30 MILLIGRAM, QD
     Route: 042
     Dates: start: 20210607
  5. TRANEXAMIC ACID [Concomitant]
     Active Substance: TRANEXAMIC ACID
     Indication: Haematochezia
     Dosage: 2500 MILLIGRAM, QD
     Route: 042
     Dates: start: 20210609
  6. MORPHINE HYDROCHLORIDE [Concomitant]
     Active Substance: MORPHINE HYDROCHLORIDE
     Indication: Abdominal pain
     Dosage: 115 MILLIGRAM, QD
     Route: 042
     Dates: start: 20210517
  7. SAMNAM LOPERAMIDE [Concomitant]
     Indication: Diarrhoea
     Dosage: 4 MILLIGRAM, QD
     Dates: start: 20210526

REACTIONS (2)
  - Respiratory failure [Fatal]
  - Drug ineffective [Unknown]

NARRATIVE: CASE EVENT DATE: 20210101
